FAERS Safety Report 10046606 (Version 1)
Quarter: 2014Q1

REPORT INFORMATION
  Report Type: Spontaneous
  Country: US (occurrence: US)
  Receive Date: 20140331
  Receipt Date: 20140331
  Transmission Date: 20141002
  Serious: No
  Sender: FDA-Public Use
  Company Number: US-BIOGENIDEC-2014BI028727

PATIENT
  Age: 55 Year
  Sex: Female

DRUGS (9)
  1. TECFIDERA [Suspect]
     Indication: MULTIPLE SCLEROSIS
     Route: 048
  2. ADVI [Concomitant]
  3. AMPYRA [Concomitant]
  4. INSULIN SYRINGE [Concomitant]
  5. IRON [Concomitant]
  6. LANTUS SOLOSTAR [Concomitant]
  7. LOSARTAN POTASSIUM [Concomitant]
  8. VITAMIN D-3 [Concomitant]
  9. VITAMIN E [Concomitant]

REACTIONS (1)
  - Rhinorrhoea [Unknown]
